FAERS Safety Report 5488819-X (Version None)
Quarter: 2007Q4

REPORT INFORMATION
  Report Type: 
  Country: None (occurrence: None)
  Receive Date: 20071017
  Receipt Date: 20071008
  Transmission Date: 20080405
  Serious: Yes (Disabling, Other)
  Sender: FDA-Public Use
  Company Number: GB-PFIZER INC-2007067768

PATIENT
  Sex: Male

DRUGS (1)
  1. CHAMPIX [Suspect]
     Indication: SMOKING CESSATION THERAPY
     Route: 048
     Dates: start: 20070105, end: 20070806

REACTIONS (5)
  - AGEUSIA [None]
  - ANOSMIA [None]
  - HYPERHIDROSIS [None]
  - NASAL CONGESTION [None]
  - SLEEP DISORDER [None]
